FAERS Safety Report 14908297 (Version 1)
Quarter: 2018Q2

REPORT INFORMATION
  Report Type: Spontaneous
  Country: FR (occurrence: FR)
  Receive Date: 20180517
  Receipt Date: 20180517
  Transmission Date: 20180711
  Serious: Yes (Other)
  Sender: FDA-Public Use
  Company Number: FR-MERCK KGAA-2047991

PATIENT
  Age: 65 Year
  Sex: Female

DRUGS (1)
  1. NOVOTHYROX [Suspect]
     Active Substance: LEVOTHYROXINE SODIUM
     Indication: THYROIDITIS CHRONIC
     Dates: end: 2018

REACTIONS (15)
  - Diarrhoea [None]
  - Fatigue [None]
  - Blood thyroid stimulating hormone increased [None]
  - Loss of personal independence in daily activities [None]
  - Stress [None]
  - Gastrointestinal disorder [None]
  - Muscle spasms [None]
  - Asthenia [None]
  - Apathy [None]
  - Headache [None]
  - Overdose [None]
  - Abdominal pain [None]
  - Pain in extremity [None]
  - Limb discomfort [None]
  - Vertigo [None]

NARRATIVE: CASE EVENT DATE: 20180108
